FAERS Safety Report 18441578 (Version 1)
Quarter: 2020Q4

REPORT INFORMATION
  Report Type: Spontaneous
  Country: CN (occurrence: CN)
  Receive Date: 20201029
  Receipt Date: 20201029
  Transmission Date: 20210114
  Serious: Yes (Hospitalization)
  Sender: FDA-Public Use
  Company Number: CN-PFIZER INC-2020415374

PATIENT
  Age: 66 Year
  Sex: Male

DRUGS (1)
  1. RAPAMUNE [Suspect]
     Active Substance: SIROLIMUS
     Indication: THERAPEUTIC PROCEDURE
     Dosage: 2 MG, 1X/DAY
     Route: 048
     Dates: start: 20191021, end: 20191026

REACTIONS (2)
  - Mouth ulceration [Recovering/Resolving]
  - Pyrexia [Unknown]

NARRATIVE: CASE EVENT DATE: 201910
